FAERS Safety Report 23890086 (Version 4)
Quarter: 2025Q3

REPORT INFORMATION
  Report Type: Spontaneous
  Country: US (occurrence: US)
  Receive Date: 20240523
  Receipt Date: 20250927
  Transmission Date: 20251021
  Serious: Yes (Other)
  Sender: SANOFI AVENTIS
  Company Number: US-SA-SAC20240521001062

PATIENT
  Age: 75 Year
  Sex: Female

DRUGS (6)
  1. DUPIXENT [Suspect]
     Active Substance: DUPILUMAB
     Indication: Dermatitis atopic
     Dosage: 300 MG, QOW
     Route: 058
     Dates: start: 20240220
  2. DUPIXENT [Suspect]
     Active Substance: DUPILUMAB
     Indication: Asthma
  3. TYLENOL [Concomitant]
     Active Substance: ACETAMINOPHEN
  4. MINERALS\VITAMINS [Concomitant]
     Active Substance: MINERALS\VITAMINS
  5. SUPER MULTIPLE [Concomitant]
  6. CENTRUM ADULTS [Concomitant]

REACTIONS (3)
  - Ascites [Unknown]
  - Weight increased [Unknown]
  - Surgery [Unknown]

NARRATIVE: CASE EVENT DATE: 20240101
